FAERS Safety Report 7669582-0 (Version None)
Quarter: 2011Q3

REPORT INFORMATION
  Report Type: 
  Country: None (occurrence: None)
  Receive Date: 20110808
  Receipt Date: 20110728
  Transmission Date: 20111222
  Serious: Yes (Hospitalization)
  Sender: FDA-Public Use
  Company Number: AU-ASTRAZENECA-2011SE43976

PATIENT
  Age: 45 Year
  Sex: Female

DRUGS (1)
  1. ARIMIDEX [Suspect]
     Route: 048
     Dates: start: 20110601

REACTIONS (9)
  - PAIN [None]
  - MOOD SWINGS [None]
  - VIRAL INFECTION [None]
  - ARTHRALGIA [None]
  - BLOOD CHOLESTEROL INCREASED [None]
  - PARAESTHESIA [None]
  - TEARFULNESS [None]
  - HOT FLUSH [None]
  - DEPRESSED MOOD [None]
